FAERS Safety Report 4610335-5 (Version None)
Quarter: 2005Q1

REPORT INFORMATION
  Report Type: 
  Country: None (occurrence: None)
  Receive Date: 20050314
  Receipt Date: 20050301
  Transmission Date: 20050727
  Serious: Yes (Other)
  Sender: FDA-Public Use
  Company Number: 200510835BCC

PATIENT
  Age: 48 Year
  Sex: Male
  Weight: 108.8633 kg

DRUGS (5)
  1. ALEVE [Suspect]
     Indication: ANALGESIC EFFECT
     Dosage: 440 MG, BID, ORAL
     Route: 048
     Dates: start: 20050222, end: 20050223
  2. ALEVE [Suspect]
     Indication: CONTUSION
     Dosage: 440 MG, BID, ORAL
     Route: 048
     Dates: start: 20050222, end: 20050223
  3. ALEVE [Suspect]
     Indication: SKELETAL INJURY
     Dosage: 440 MG, BID, ORAL
     Route: 048
     Dates: start: 20050222, end: 20050223
  4. SYNTHROID [Concomitant]
  5. ZETIA [Concomitant]

REACTIONS (10)
  - ANORECTAL DISORDER [None]
  - BURNING SENSATION [None]
  - ERYTHEMA [None]
  - FEELING ABNORMAL [None]
  - HAEMORRHAGE [None]
  - NASAL MUCOSAL DISORDER [None]
  - ORAL MUCOSAL DISORDER [None]
  - RASH MACULAR [None]
  - SCAB [None]
  - STOMATITIS [None]
